FAERS Safety Report 18692757 (Version 1)
Quarter: 2021Q1

REPORT INFORMATION
  Report Type: Spontaneous
  Country: US (occurrence: US)
  Receive Date: 20210104
  Receipt Date: 20210104
  Transmission Date: 20210419
  Serious: Yes (Hospitalization, Other)
  Sender: FDA-Public Use
  Company Number: US-AMGEN-USASP2020210756

PATIENT
  Age: 68 Year
  Sex: Male

DRUGS (2)
  1. AVSOLA [Suspect]
     Active Substance: INFLIXIMAB-AXXQ
     Indication: COLITIS
     Dosage: UNK
     Route: 065
  2. IPILIMUMAB;NIVOLUMAB [Concomitant]
     Indication: PROSTATE CANCER METASTATIC
     Dosage: UNK

REACTIONS (6)
  - Serositis [Unknown]
  - Mucosal inflammation [Recovered/Resolved]
  - Drug ineffective [Unknown]
  - Large intestine perforation [Unknown]
  - Abscess intestinal [Unknown]
  - Pneumoperitoneum [Unknown]
